FAERS Safety Report 5704169-8 (Version None)
Quarter: 2008Q2

REPORT INFORMATION
  Report Type: 
  Country: None (occurrence: None)
  Receive Date: 20080409
  Receipt Date: 20080403
  Transmission Date: 20081010
  Serious: Yes (Death)
  Sender: FDA-Public Use
  Company Number: MSTR-NO-0804S-0014

PATIENT
  Age: 70 Year
  Sex: Female

DRUGS (1)
  1. METASTRON [Suspect]
     Indication: METASTATIC PAIN
     Dosage: SINGLE DOSE
     Dates: start: 20080208, end: 20080208

REACTIONS (1)
  - HEPATIC NEOPLASM MALIGNANT [None]
